FAERS Safety Report 19189702 (Version 1)
Quarter: 2021Q2

REPORT INFORMATION
  Report Type: Spontaneous
  Country: PL (occurrence: PL)
  Receive Date: 20210428
  Receipt Date: 20210428
  Transmission Date: 20210717
  Serious: Yes (Hospitalization, Other)
  Sender: FDA-Public Use
  Company Number: PL-PFIZER INC-2021429772

PATIENT
  Age: 46 Year
  Sex: Male

DRUGS (10)
  1. ENTRESTO [Suspect]
     Active Substance: SACUBITRIL\VALSARTAN
     Dosage: UNK
  2. EPLERENONE. [Suspect]
     Active Substance: EPLERENONE
     Dosage: 1 DF, QD
  3. RAMIPRIL. [Suspect]
     Active Substance: RAMIPRIL
     Indication: CARDIAC FAILURE CHRONIC
     Dosage: 1 DF, QD
     Route: 048
  4. TORASEMIDE [Suspect]
     Active Substance: TORSEMIDE
     Indication: CARDIAC FAILURE CHRONIC
     Dosage: 20 MG, QD
  5. ROSUVASTATIN. [Suspect]
     Active Substance: ROSUVASTATIN
     Indication: CARDIAC FAILURE CHRONIC
     Dosage: 1 DF, QD
  6. IVABRADINE HYDROCHLORIDE [Suspect]
     Active Substance: IVABRADINE HYDROCHLORIDE
     Indication: CARDIAC FAILURE CHRONIC
     Dosage: FREQ:12 H;5 DF, BID
  7. ATORVASTATIN CALCIUM. [Suspect]
     Active Substance: ATORVASTATIN CALCIUM
     Dosage: 1 DF, QD
  8. ACETYLSALICYLIC ACID [Suspect]
     Active Substance: ASPIRIN
     Indication: CARDIAC FAILURE CHRONIC
     Dosage: 1 DF, QD
  9. CARVEDILOL. [Suspect]
     Active Substance: CARVEDILOL
     Indication: CARDIAC FAILURE CHRONIC
     Dosage: FREQ:12 H;1 DF, BID
  10. ENTRESTO [Suspect]
     Active Substance: SACUBITRIL\VALSARTAN
     Indication: CARDIAC FAILURE CHRONIC

REACTIONS (6)
  - Hypotension [Unknown]
  - Electrocardiogram abnormal [Unknown]
  - Feeling abnormal [Unknown]
  - Bradycardia [Unknown]
  - Cardiac failure [Recovered/Resolved]
  - Computerised tomogram coronary artery abnormal [Unknown]

NARRATIVE: CASE EVENT DATE: 20190522
